FAERS Safety Report 8455801-X (Version None)
Quarter: 2012Q2

REPORT INFORMATION
  Report Type: 
  Country: None (occurrence: None)
  Receive Date: 20120621
  Receipt Date: 20120619
  Transmission Date: 20120825
  Serious: Yes (Other)
  Sender: FDA-Public Use
  Company Number: US-PURDUE-USA-2012-0088044

PATIENT
  Age: 54 Year
  Sex: Male
  Weight: 162 kg

DRUGS (8)
  1. BUTRANS [Suspect]
     Indication: BACK PAIN
     Dosage: 10 MCG/HR, UNK
     Route: 062
     Dates: start: 20110101, end: 20110101
  2. DULCOLAX [Concomitant]
     Indication: PRODUCT USED FOR UNKNOWN INDICATION
     Dosage: UNK, PRN
  3. VALIUM [Concomitant]
     Indication: PRODUCT USED FOR UNKNOWN INDICATION
     Dosage: UNK, SEE TEXT
  4. BUTRANS [Suspect]
     Indication: PAIN
     Dosage: 20 MCG/HR, UNK
     Route: 062
     Dates: start: 20110928, end: 20111031
  5. PROAIR HFA [Concomitant]
     Indication: PRODUCT USED FOR UNKNOWN INDICATION
     Dosage: UNK, PRN
  6. NORCO [Concomitant]
     Indication: PRODUCT USED FOR UNKNOWN INDICATION
     Dosage: UNK, SEE TEXT
  7. BUTRANS [Suspect]
     Indication: LUMBAR RADICULOPATHY
     Dosage: 5 MCG/HR, UNK
     Route: 062
     Dates: start: 20110101, end: 20110101
  8. BUTRANS [Suspect]
     Indication: INTERVERTEBRAL DISC DEGENERATION

REACTIONS (7)
  - OVERDOSE [None]
  - OCULAR HYPERAEMIA [None]
  - DIZZINESS [None]
  - DRUG LEVEL INCREASED [None]
  - MEMORY IMPAIRMENT [None]
  - LOSS OF CONSCIOUSNESS [None]
  - WRONG TECHNIQUE IN DRUG USAGE PROCESS [None]
